FAERS Safety Report 14999302 (Version 1)
Quarter: 2018Q2

REPORT INFORMATION
  Report Type: Spontaneous
  Country: US (occurrence: US)
  Receive Date: 20180522
  Receipt Date: 20180522
  Transmission Date: 20180711
  Serious: No
  Sender: FDA-Public Use
  Company Number: None

PATIENT
  Age: 50 Year
  Sex: Female
  Weight: 54 kg

DRUGS (2)
  1. XARELTO [Suspect]
     Active Substance: RIVAROXABAN
     Indication: DEEP VEIN THROMBOSIS
     Dosage: ?          QUANTITY:1 DF DOSAGE FORM;?
     Route: 048
     Dates: start: 20180320, end: 20180521
  2. ONE A DAY MULTIVITAMIN FOR WOMEN [Concomitant]

REACTIONS (5)
  - Crying [None]
  - Depression [None]
  - Hair growth abnormal [None]
  - Social avoidant behaviour [None]
  - Alopecia [None]

NARRATIVE: CASE EVENT DATE: 20180508
